FAERS Safety Report 18712380 (Version 1)
Quarter: 2021Q1

REPORT INFORMATION
  Report Type: Spontaneous
  Country: US (occurrence: US)
  Receive Date: 20210107
  Receipt Date: 20210107
  Transmission Date: 20210419
  Serious: Yes (Hospitalization)
  Sender: FDA-Public Use
  Company Number: US-MYLANLABS-2021M1000564

PATIENT
  Age: 59 Year
  Sex: Male

DRUGS (1)
  1. CAPECITABINE. [Suspect]
     Active Substance: CAPECITABINE
     Indication: COLON CANCER STAGE III
     Route: 065

REACTIONS (4)
  - Cholestasis [Recovering/Resolving]
  - Hepatotoxicity [Recovering/Resolving]
  - Nephropathy [Recovering/Resolving]
  - Acute hepatic failure [Recovering/Resolving]
